FAERS Safety Report 14232978 (Version 1)
Quarter: 2017Q4

REPORT INFORMATION
  Report Type: Spontaneous
  Country: US (occurrence: US)
  Receive Date: 20171128
  Receipt Date: 20171128
  Transmission Date: 20180321
  Serious: No
  Sender: FDA-Public Use
  Company Number: US-LEADIANT BIOSCIENCES INC-2017STPI000060

PATIENT
  Sex: Male

DRUGS (7)
  1. BACTRIM [Concomitant]
     Active Substance: SULFAMETHOXAZOLE\TRIMETHOPRIM
  2. GENERLAC [Concomitant]
     Active Substance: LACTULOSE
  3. LEVETIRACETAM. [Concomitant]
     Active Substance: LEVETIRACETAM
  4. TAMSULOSIN [Concomitant]
     Active Substance: TAMSULOSIN
  5. ONDANSETRON [Concomitant]
     Active Substance: ONDANSETRON
  6. MATULANE [Suspect]
     Active Substance: PROCARBAZINE HYDROCHLORIDE
     Indication: BRAIN CANCER METASTATIC
     Dosage: 50 MG, UNK
     Route: 048
  7. MONTELUKAST [Concomitant]
     Active Substance: MONTELUKAST SODIUM

REACTIONS (1)
  - Nausea [Not Recovered/Not Resolved]
